FAERS Safety Report 6659727-3 (Version None)
Quarter: 2010Q1

REPORT INFORMATION
  Report Type: 
  Country: None (occurrence: None)
  Receive Date: 20100326
  Receipt Date: 20100310
  Transmission Date: 20100710
  Serious: Yes (Hospitalization, Other)
  Sender: FDA-Public Use
  Company Number: 006299

PATIENT
  Age: 81 Year
  Sex: Female

DRUGS (4)
  1. MACUGEN [Suspect]
     Indication: MACULAR DEGENERATION
     Dosage: INTRAOCULAR
     Route: 031
     Dates: start: 20060919, end: 20070116
  2. ISOPTO-MAX (DEXAMETHASONE, NEOMYCIN SULFATE, POLYMYXIN B SULFATE) [Concomitant]
  3. XYLOCAIN GEL (LIDOCAINE HYDROCHLORIDE) [Concomitant]
  4. POVIDONE IODINE [Concomitant]

REACTIONS (3)
  - ENDOPHTHALMITIS [None]
  - INTRAOCULAR PRESSURE INCREASED [None]
  - VISUAL ACUITY REDUCED [None]
